FAERS Safety Report 8111401-2 (Version None)
Quarter: 2012Q1

REPORT INFORMATION
  Report Type: 
  Country: None (occurrence: None)
  Receive Date: 20120203
  Receipt Date: 20111104
  Transmission Date: 20120608
  Serious: No
  Sender: FDA-Public Use
  Company Number: US-GLAXOSMITHKLINE-A0952500A

PATIENT
  Sex: Female

DRUGS (2)
  1. LAMICTAL [Suspect]
     Indication: CONVULSION
     Route: 065
  2. LAMOTRIGINE [Suspect]
     Indication: CONVULSION
     Route: 065

REACTIONS (3)
  - MUSCLE TWITCHING [None]
  - ANXIETY [None]
  - THERAPEUTIC RESPONSE UNEXPECTED [None]
